FAERS Safety Report 7632872-1 (Version None)
Quarter: 2011Q3

REPORT INFORMATION
  Report Type: 
  Country: None (occurrence: None)
  Receive Date: 20110725
  Receipt Date: 20110712
  Transmission Date: 20111222
  Serious: Yes (Other)
  Sender: FDA-Public Use
  Company Number: PHHY2011JP63066

PATIENT
  Age: 36 Year
  Sex: Male

DRUGS (8)
  1. ANGIOTENSIN II ANTAGONISTS [Concomitant]
     Dosage: UNK
  2. CYCLOSPORINE [Suspect]
     Indication: RENAL TRANSPLANT
     Dosage: 5 MG/KG, UNK
     Dates: start: 20080601
  3. LEVOTHYROXINE SODIUM [Concomitant]
  4. CYCLOSPORINE [Suspect]
     Dosage: 95 NG/ML
  5. PREDNISOLONE [Concomitant]
     Indication: RENAL TRANSPLANT
  6. MIZORIBINE [Concomitant]
     Indication: RENAL TRANSPLANT
     Dosage: UNK
  7. CYCLOSPORINE [Suspect]
     Dosage: 640 NG/ML
  8. BASILIXIMAB [Concomitant]
     Indication: RENAL TRANSPLANT

REACTIONS (9)
  - METABOLIC DISORDER [None]
  - MYOGLOBIN URINE PRESENT [None]
  - NEPHROPATHY TOXIC [None]
  - FATIGUE [None]
  - MYOGLOBIN BLOOD INCREASED [None]
  - MYALGIA [None]
  - IMMUNOSUPPRESSANT DRUG LEVEL INCREASED [None]
  - RHABDOMYOLYSIS [None]
  - BLOOD CREATINE PHOSPHOKINASE INCREASED [None]
